FAERS Safety Report 13329814 (Version 1)
Quarter: 2017Q1

REPORT INFORMATION
  Report Type: Report from Study
  Country: JP (occurrence: JP)
  Receive Date: 20170313
  Receipt Date: 20170313
  Transmission Date: 20170428
  Serious: Yes (Death)
  Sender: FDA-Public Use
  Company Number: JP-OTSUKA-2017_001187AA

PATIENT
  Age: 53 Year
  Sex: Male

DRUGS (4)
  1. ARIPIPRAZOLE (DUAL CHAMBER) [Suspect]
     Active Substance: ARIPIPRAZOLE
     Dosage: 400 MG, SINGLE
     Route: 030
     Dates: start: 20160901, end: 20160901
  2. ABILIFY [Concomitant]
     Active Substance: ARIPIPRAZOLE
     Indication: SCHIZOPHRENIA
     Dosage: 30 MG, QD
     Route: 048
     Dates: end: 20161006
  3. ARIPIPRAZOLE (DUAL CHAMBER) [Suspect]
     Active Substance: ARIPIPRAZOLE
     Indication: SCHIZOPHRENIA
     Dosage: 400 MG, SINGLE
     Route: 030
     Dates: start: 20161006, end: 20161006
  4. ARIPIPRAZOLE (DUAL CHAMBER) [Suspect]
     Active Substance: ARIPIPRAZOLE
     Dosage: 400 MG, SINGLE
     Route: 030
     Dates: start: 20160728, end: 20160728

REACTIONS (1)
  - Death [Fatal]

NARRATIVE: CASE EVENT DATE: 20161023
